FAERS Safety Report 9092300 (Version 1)
Quarter: 2013Q1

REPORT INFORMATION
  Report Type: Report from Study
  Country: US (occurrence: US)
  Receive Date: 20130131
  Receipt Date: 20130131
  Transmission Date: 20140127
  Serious: No
  Sender: FDA-Public Use
  Company Number: US-ABBOTT-12P-163-1003249-00

PATIENT
  Sex: Female

DRUGS (4)
  1. HUMIRA [Suspect]
     Indication: PRODUCT USED FOR UNKNOWN INDICATION
     Dosage: 40 MG (0.8ML) EVERY TWO WEEKS
     Route: 058
     Dates: start: 20100203
  2. Z-PAK [Concomitant]
     Indication: PRODUCT USED FOR UNKNOWN INDICATION
  3. CEPHALEXIN [Concomitant]
     Indication: BRONCHITIS
  4. CEPHALEXIN [Concomitant]
     Indication: PNEUMONIA

REACTIONS (2)
  - Pneumonia [Unknown]
  - Bronchitis [Unknown]
